FAERS Safety Report 13953665 (Version 3)
Quarter: 2019Q2

REPORT INFORMATION
  Report Type: Spontaneous
  Country: US (occurrence: US)
  Receive Date: 20170911
  Receipt Date: 20190509
  Transmission Date: 20190711
  Serious: Yes (Hospitalization)
  Sender: FDA-Public Use
  Company Number: US-PFIZER INC-2017391332

PATIENT
  Age: 63 Year
  Sex: Female
  Weight: 77.11 kg

DRUGS (13)
  1. ONDANSETRON [Concomitant]
     Active Substance: ONDANSETRON
     Indication: ABDOMINAL DISCOMFORT
     Dosage: 8 MG, UNK
     Dates: start: 201705, end: 201711
  2. METFORMIN [Concomitant]
     Active Substance: METFORMIN HYDROCHLORIDE
     Dosage: UNK
     Dates: start: 2000
  3. PACLITAXEL. [Suspect]
     Active Substance: PACLITAXEL
     Indication: OVARIAN CANCER
     Dosage: UNK, WEEKLY(INJECTION THRU PORT, D1, 8,15Q21D)
     Dates: start: 201705, end: 201710
  4. LIDOCAINE/PRILOCAINE [Concomitant]
     Dosage: 25 (UNSPECIFIED UNIT)
     Dates: start: 201705
  5. DULOXETINE. [Concomitant]
     Active Substance: DULOXETINE
     Dosage: UNK
     Dates: start: 2015, end: 201902
  6. ALPRAZOLAM. [Concomitant]
     Active Substance: ALPRAZOLAM
     Dosage: UNK
     Dates: start: 2000
  7. ONDANSETRON [Concomitant]
     Active Substance: ONDANSETRON
     Indication: NAUSEA
  8. SYNTHROID [Concomitant]
     Active Substance: LEVOTHYROXINE SODIUM
     Dosage: UNK
     Dates: start: 1998
  9. PROCHLORPERAZINE. [Concomitant]
     Active Substance: PROCHLORPERAZINE
     Indication: NAUSEA
     Dosage: 10 MG, UNK
     Dates: start: 201705, end: 201711
  10. CARBOPLATIN. [Suspect]
     Active Substance: CARBOPLATIN
     Indication: OVARIAN CANCER
     Dosage: UNK, WEEKLY (WEEKLY CHEMO ON PORT/ WEEKLY INJECTION, D1)
     Dates: start: 201705, end: 201710
  11. VALSARTAN. [Concomitant]
     Active Substance: VALSARTAN
     Dosage: UNK
     Dates: start: 1998, end: 2018
  12. PRAVASTATIN SODIUM. [Concomitant]
     Active Substance: PRAVASTATIN SODIUM
     Dosage: UNK
     Dates: start: 2000
  13. NEULASTA [Concomitant]
     Active Substance: PEGFILGRASTIM
     Indication: FULL BLOOD COUNT DECREASED
     Dosage: 6 MG, WEEKLY (SHOT)
     Dates: start: 201708, end: 201710

REACTIONS (2)
  - Alopecia [Not Recovered/Not Resolved]
  - Malaise [Not Recovered/Not Resolved]

NARRATIVE: CASE EVENT DATE: 2017
